FAERS Safety Report 13205998 (Version 1)
Quarter: 2017Q1

REPORT INFORMATION
  Report Type: Spontaneous
  Country: US (occurrence: US)
  Receive Date: 20170208
  Receipt Date: 20170208
  Transmission Date: 20170428
  Serious: Yes (Other)
  Sender: FDA-Public Use
  Company Number: None

PATIENT
  Age: 15 Year
  Sex: Female
  Weight: 51.75 kg

DRUGS (1)
  1. LEXAPRO [Suspect]
     Active Substance: ESCITALOPRAM OXALATE
     Indication: DEPRESSION
     Dosage: ?          QUANTITY:60 TABLET(S);?
     Route: 048
     Dates: start: 20170206, end: 20170206

REACTIONS (5)
  - Speech disorder [None]
  - Abnormal behaviour [None]
  - Dyspnoea [None]
  - Heart rate increased [None]
  - Depressed mood [None]

NARRATIVE: CASE EVENT DATE: 20170206
